FAERS Safety Report 9998185 (Version 1)
Quarter: 2014Q1

REPORT INFORMATION
  Report Type: Report from Study
  Country: JP (occurrence: JP)
  Receive Date: 20140311
  Receipt Date: 20140311
  Transmission Date: 20141002
  Serious: Yes (Hospitalization, Other)
  Sender: FDA-Public Use
  Company Number: JP-TAKEDA-2014TJP002835

PATIENT
  Age: 85 Year
  Sex: Female

DRUGS (3)
  1. ALOGLIPTIN [Suspect]
     Indication: TYPE 2 DIABETES MELLITUS
     Dosage: 6.25 MG, QD
     Route: 048
     Dates: start: 20120510, end: 20131204
  2. SYMBICORT [Concomitant]
     Dosage: UNK
     Route: 050
  3. BISOLVON [Concomitant]
     Dosage: UNK
     Route: 048

REACTIONS (1)
  - Cardiac failure congestive [Unknown]
